FAERS Safety Report 19153352 (Version 1)
Quarter: 2021Q2

REPORT INFORMATION
  Report Type: Spontaneous
  Country: US (occurrence: US)
  Receive Date: 20210417
  Receipt Date: 20210417
  Transmission Date: 20210717
  Serious: Yes (Hospitalization)
  Sender: FDA-Public Use
  Company Number: None

PATIENT
  Sex: Female
  Weight: 71.66 kg

DRUGS (4)
  1. 5?FLUOROURACIL (5?FU) [Suspect]
     Active Substance: FLUOROURACIL
  2. LEUCOVORIN CALCIUM. [Concomitant]
     Active Substance: LEUCOVORIN CALCIUM
  3. ELOXATIN [Concomitant]
     Active Substance: OXALIPLATIN
  4. CAMPTOSAR [Concomitant]
     Active Substance: IRINOTECAN HYDROCHLORIDE

REACTIONS (15)
  - Abdominal pain [None]
  - Abdominal tenderness [None]
  - Hypotension [None]
  - Malaise [None]
  - Neutropenia [None]
  - Enterocolitis [None]
  - Diarrhoea [None]
  - Tachycardia [None]
  - Thrombocytopenia [None]
  - Sepsis [None]
  - Nausea [None]
  - Hypophagia [None]
  - Fatigue [None]
  - Abdominal distension [None]
  - Acute kidney injury [None]

NARRATIVE: CASE EVENT DATE: 20210402
